FAERS Safety Report 5244817-2 (Version None)
Quarter: 2007Q1

REPORT INFORMATION
  Report Type: 
  Country: None (occurrence: None)
  Receive Date: 20070216
  Receipt Date: 20070206
  Transmission Date: 20070707
  Serious: Yes (Hospitalization)
  Sender: FDA-Public Use
  Company Number: CHNY2007DE00637

PATIENT
  Sex: Male
  Weight: 65 kg

DRUGS (1)
  1. NICOTINE [Suspect]
     Indication: SMOKING CESSATION THERAPY
     Dosage: 21 MG, QD, TRANSDERMAL
     Route: 062
     Dates: start: 20060704, end: 20060704

REACTIONS (4)
  - CARDIOVASCULAR DISORDER [None]
  - DRUG TOXICITY [None]
  - NAUSEA [None]
  - VOMITING [None]
